FAERS Safety Report 18321503 (Version 1)
Quarter: 2020Q3

REPORT INFORMATION
  Report Type: Spontaneous
  Country: GB (occurrence: GB)
  Receive Date: 20200928
  Receipt Date: 20200928
  Transmission Date: 20201103
  Serious: Yes (Hospitalization, Other)
  Sender: FDA-Public Use
  Company Number: GB-PFIZER INC-2020367520

PATIENT
  Age: 74 Year
  Sex: Male

DRUGS (6)
  1. DOCETAXEL. [Suspect]
     Active Substance: DOCETAXEL
     Dosage: 75 MG/M2, CYCLIC
     Route: 042
     Dates: start: 20170628, end: 20170628
  2. DOCETAXEL. [Suspect]
     Active Substance: DOCETAXEL
     Dosage: 75 MG/M2, CYCLIC
     Route: 042
     Dates: start: 20170906, end: 20170906
  3. DOCETAXEL. [Suspect]
     Active Substance: DOCETAXEL
     Dosage: 75 MG/M2, CYCLIC
     Route: 042
     Dates: start: 20170719, end: 20170719
  4. DOCETAXEL. [Suspect]
     Active Substance: DOCETAXEL
     Dosage: 75 MG/M2, CYCLIC
     Route: 042
     Dates: start: 20170816, end: 20170816
  5. DOCETAXEL. [Suspect]
     Active Substance: DOCETAXEL
     Indication: PROSTATE CANCER
     Dosage: 75 MG/M2, CYCLIC
     Route: 042
     Dates: start: 20170510, end: 20170510
  6. DOCETAXEL. [Suspect]
     Active Substance: DOCETAXEL
     Dosage: 75 MG/M2, CYCLIC
     Route: 042
     Dates: start: 20170531, end: 20170531

REACTIONS (15)
  - Headache [Unknown]
  - Inflammation [Unknown]
  - Pulmonary embolism [Recovered/Resolved]
  - Nocturia [Unknown]
  - Dyspnoea [Recovered/Resolved]
  - Fatigue [Unknown]
  - Diarrhoea [Recovered/Resolved]
  - Oropharyngeal pain [Unknown]
  - Pollakiuria [Unknown]
  - Lethargy [Unknown]
  - Oral candidiasis [Recovered/Resolved]
  - Incontinence [Recovered/Resolved]
  - Dry mouth [Unknown]
  - Feeling abnormal [Unknown]
  - Hiccups [Unknown]

NARRATIVE: CASE EVENT DATE: 2017
